FAERS Safety Report 7151659-X (Version None)
Quarter: 2010Q4

REPORT INFORMATION
  Report Type: 
  Country: None (occurrence: None)
  Receive Date: 20101210
  Receipt Date: 20101207
  Transmission Date: 20110411
  Serious: Yes (Hospitalization, Other)
  Sender: FDA-Public Use
  Company Number: US-PFIZER INC-2010126114

PATIENT
  Sex: Male

DRUGS (7)
  1. CHANTIX [Suspect]
     Indication: SMOKING CESSATION THERAPY
     Dosage: UNK
     Dates: start: 20071101, end: 20071127
  2. TRICOR [Concomitant]
     Indication: BLOOD TRIGLYCERIDES INCREASED
     Dosage: UNK
     Dates: start: 20050101
  3. PREVACID [Concomitant]
     Indication: GASTROOESOPHAGEAL REFLUX DISEASE
     Dosage: UNK
     Dates: start: 20020101
  4. PREVACID [Concomitant]
     Indication: GASTRITIS
  5. FEXOFENADINE [Concomitant]
     Indication: RHINITIS ALLERGIC
     Dosage: UNK
     Dates: start: 20060101
  6. OMEPRAZOLE [Concomitant]
     Indication: GASTROOESOPHAGEAL REFLUX DISEASE
     Dosage: UNK
     Dates: start: 20060101, end: 20080101
  7. OMEPRAZOLE [Concomitant]
     Indication: GASTRITIS

REACTIONS (10)
  - CONVULSION [None]
  - DECREASED APPETITE [None]
  - DEPRESSION [None]
  - FALL [None]
  - HEADACHE [None]
  - LOSS OF CONSCIOUSNESS [None]
  - NAUSEA [None]
  - SCAR [None]
  - SKIN LACERATION [None]
  - SUICIDAL IDEATION [None]
